FAERS Safety Report 9391602 (Version 1)
Quarter: 2013Q3

REPORT INFORMATION
  Report Type: Spontaneous
  Country: US (occurrence: US)
  Receive Date: 20130709
  Receipt Date: 20130709
  Transmission Date: 20140515
  Serious: No
  Sender: FDA-Public Use
  Company Number: US-BAYER-2013-083530

PATIENT
  Age: 70 Year
  Sex: Female
  Weight: 72.56 kg

DRUGS (10)
  1. ALEVE TABLET [Suspect]
     Indication: PROCEDURAL PAIN
     Dosage: 2 DF, PRN
     Route: 048
     Dates: start: 1998
  2. OXYCODONE [Concomitant]
  3. ACETAMINOPHEN [Concomitant]
  4. IBUPROFEN [Concomitant]
  5. CYMBALTA [Concomitant]
  6. LIPITOR [Concomitant]
  7. TAMOXIFEN [Concomitant]
  8. FISH OIL [Concomitant]
  9. VITAMIN D [Concomitant]
  10. VITAMIN B COMPLEX [Concomitant]

REACTIONS (1)
  - Drug ineffective [None]
